FAERS Safety Report 7779285-X (Version None)
Quarter: 2011Q3

REPORT INFORMATION
  Report Type: 
  Country: None (occurrence: None)
  Receive Date: 20110926
  Receipt Date: 20110916
  Transmission Date: 20111222
  Serious: Yes (Other)
  Sender: FDA-Public Use
  Company Number: DE-ASTRAZENECA-2011SE56169

PATIENT
  Age: 56 Year
  Sex: Female

DRUGS (7)
  1. MYCOPHENOLATE MOFETIL [Suspect]
     Indication: IMMUNOSUPPRESSANT DRUG THERAPY
  2. MEROPENEM [Suspect]
     Indication: ESCHERICHIA INFECTION
  3. SIROLIMUS [Suspect]
     Indication: IMMUNOSUPPRESSANT DRUG THERAPY
  4. TACROLIMUS [Suspect]
     Dosage: LOWEST DOSE
  5. CORTISONE ACETATE [Suspect]
     Indication: IMMUNOSUPPRESSANT DRUG THERAPY
  6. VORICONAZOLE [Concomitant]
  7. TACROLIMUS [Suspect]
     Indication: IMMUNOSUPPRESSANT DRUG THERAPY

REACTIONS (3)
  - HEPATIC ENZYME INCREASED [None]
  - DRUG INTERACTION [None]
  - EPSTEIN-BARR VIRUS ASSOCIATED LYMPHOPROLIFERATIVE DISORDER [None]
